FAERS Safety Report 9038902 (Version 1)
Quarter: 2013Q1

REPORT INFORMATION
  Report Type: Spontaneous
  Country: US (occurrence: US)
  Receive Date: 20130129
  Receipt Date: 20130129
  Transmission Date: 20140127
  Serious: Yes (Hospitalization, Other)
  Sender: FDA-Public Use
  Company Number: US-TEVA-382547USA

PATIENT
  Sex: Female

DRUGS (4)
  1. CLONAZEPAM [Suspect]
  2. LYRICA [Suspect]
  3. UNSPECIFIED INGREDIENT [Suspect]
  4. COPAXONE [Concomitant]
     Dates: start: 20090602, end: 20121015

REACTIONS (7)
  - Suicide attempt [Recovered/Resolved]
  - Intentional overdose [Recovered/Resolved]
  - Depressed level of consciousness [Recovered/Resolved]
  - Loss of consciousness [Recovered/Resolved]
  - Heart rate abnormal [Recovered/Resolved]
  - Heart rate decreased [None]
  - Intentional overdose [None]
